FAERS Safety Report 7439711-2 (Version None)
Quarter: 2011Q2

REPORT INFORMATION
  Report Type: 
  Country: None (occurrence: None)
  Receive Date: 20110427
  Receipt Date: 20110415
  Transmission Date: 20111010
  Serious: Yes (Other)
  Sender: FDA-Public Use
  Company Number: PHBS2006IT12686

PATIENT
  Age: 68 Year
  Sex: Male

DRUGS (2)
  1. CLOZAPINE [Suspect]
     Indication: DELUSION
     Dosage: 25 MG, DAILY
     Route: 065
     Dates: start: 20040301
  2. CLOZAPINE [Suspect]
     Indication: AGITATION
     Dosage: 12.5 MG, DAILY
     Route: 065

REACTIONS (3)
  - SOMNOLENCE [None]
  - SLEEP APNOEA SYNDROME [None]
  - HICCUPS [None]
